FAERS Safety Report 7220848-8 (Version None)
Quarter: 2011Q1

REPORT INFORMATION
  Report Type: 
  Country: None (occurrence: None)
  Receive Date: 20110112
  Receipt Date: 20101229
  Transmission Date: 20110831
  Serious: Yes (Other)
  Sender: FDA-Public Use
  Company Number: US-CELGENEUS-163-21880-10090512

PATIENT
  Sex: Female

DRUGS (5)
  1. REVLIMID [Suspect]
     Indication: MULTIPLE MYELOMA
     Route: 048
     Dates: start: 20081001
  2. REVLIMID [Suspect]
     Dosage: 10-15 MG
     Route: 048
     Dates: start: 20100401
  3. PAIN MEDICATION [Concomitant]
     Indication: PAIN
     Route: 065
  4. REVLIMID [Suspect]
     Route: 048
     Dates: start: 20090401
  5. REVLIMID [Suspect]
     Route: 048
     Dates: start: 20100801

REACTIONS (2)
  - NEUTROPHIL COUNT DECREASED [None]
  - BLOOD HUMAN CHORIONIC GONADOTROPIN INCREASED [None]
